FAERS Safety Report 9274038 (Version 1)
Quarter: 2013Q2

REPORT INFORMATION
  Report Type: Spontaneous
  Country: US (occurrence: US)
  Receive Date: 20130506
  Receipt Date: 20130506
  Transmission Date: 20140414
  Serious: No
  Sender: FDA-Public Use
  Company Number: US-AMGEN-USASP2013025972

PATIENT
  Age: 26 Year
  Sex: Female
  Weight: 81.63 kg

DRUGS (3)
  1. ENBREL [Suspect]
     Indication: PSORIASIS
     Dosage: 50 MG, 2 TIMES/WK FOR 3 MONTHS THEN 50 MG ONCE PER WEEK
     Route: 058
     Dates: start: 20130329
  2. GENERESS FE [Concomitant]
     Dosage: UNK
  3. PHENTERMINE [Concomitant]
     Dosage: 8 MG, UNK

REACTIONS (1)
  - Sinusitis [Unknown]
